FAERS Safety Report 13486134 (Version 1)
Quarter: 2017Q2

REPORT INFORMATION
  Report Type: Spontaneous
  Country: US (occurrence: US)
  Receive Date: 20170426
  Receipt Date: 20170426
  Transmission Date: 20170830
  Serious: Yes (Other)
  Sender: FDA-Public Use
  Company Number: None

PATIENT
  Age: 65 Year
  Sex: Male
  Weight: 76.5 kg

DRUGS (6)
  1. ACETAMINOPHEN. [Concomitant]
     Active Substance: ACETAMINOPHEN
  2. FLONASE [Suspect]
     Active Substance: FLUTICASONE PROPIONATE
     Indication: MULTIPLE ALLERGIES
     Dosage: OTHER ROUTE:1 SPRAY PER NOSTRIL?
     Route: 045
  3. TURMERIC [Concomitant]
     Active Substance: HERBALS\TURMERIC
  4. LOSINOPRIL [Concomitant]
  5. MULTIVITAMIN-MINERAL SUPPLEMENT [Concomitant]
  6. SIMVASTATIN. [Concomitant]
     Active Substance: SIMVASTATIN

REACTIONS (2)
  - Eye haemorrhage [None]
  - Epistaxis [None]

NARRATIVE: CASE EVENT DATE: 20170322
